FAERS Safety Report 9052641 (Version 3)
Quarter: 2013Q2

REPORT INFORMATION
  Report Type: Spontaneous
  Country: US (occurrence: US)
  Receive Date: 20130207
  Receipt Date: 20130430
  Transmission Date: 20140414
  Serious: Yes (Hospitalization)
  Sender: FDA-Public Use
  Company Number: US-BAYER-2013-016290

PATIENT
  Age: 44 Year
  Sex: Female
  Weight: 68.03 kg

DRUGS (14)
  1. YAZ [Suspect]
  2. YASMIN [Suspect]
  3. DARVOCET [Concomitant]
     Dosage: UNK
     Dates: start: 20080316
  4. FOLATE SODIUM [Concomitant]
     Dosage: UNK
     Route: 048
     Dates: start: 20080316
  5. HUMIRA [Concomitant]
     Dosage: UNK UNK, Q2WK
     Dates: start: 20080316
  6. HUMORSOL [Concomitant]
     Dosage: UNK
     Dates: start: 20080316
  7. IBUPROFEN [Concomitant]
     Dosage: UNK UNK, PRN
     Route: 048
     Dates: start: 20080316
  8. METHOTREXATE [Concomitant]
     Dosage: 5 MG, QWK
  9. PREDNISONE [Concomitant]
     Dosage: 5 MG, QD
     Route: 048
     Dates: start: 20080316
  10. CALCIUM D [Concomitant]
     Dosage: UNK
     Dates: start: 20080317
  11. FISH OIL [Concomitant]
     Dosage: UNK
     Dates: start: 20080317
  12. MULTIVITAMIN [Concomitant]
     Dosage: UNK
     Dates: start: 20080317
  13. VITAMIN C [Concomitant]
     Dosage: UNK
     Dates: start: 20080317
  14. VITAMIN E [Concomitant]
     Dosage: UNK
     Dates: start: 20080317

REACTIONS (1)
  - Pulmonary embolism [None]
